FAERS Safety Report 13341182 (Version 3)
Quarter: 2017Q1

REPORT INFORMATION
  Report Type: Spontaneous
  Country: CH (occurrence: CN)
  Receive Date: 20170316
  Receipt Date: 20170331
  Transmission Date: 20170428
  Serious: Yes (Other)
  Sender: FDA-Public Use
  Company Number: CH-LPDUSPRD-20170253

PATIENT
  Sex: Female
  Weight: 64 kg

DRUGS (5)
  1. VENOFER [Suspect]
     Active Substance: IRON SUCROSE
     Dosage: 200 MG/100 ML NS(1 TO 1)
     Route: 041
     Dates: start: 20170215, end: 20170215
  2. RED BLOOD CELLS [Concomitant]
     Active Substance: HUMAN RED BLOOD CELL
     Dosage: 2 UNITS
     Route: 065
     Dates: start: 20170214, end: 20170214
  3. SODIUM CHLORIDE. [Concomitant]
     Active Substance: SODIUM CHLORIDE
     Route: 065
  4. CEFAZOLIN SODIUM PENDAHYDRATE [Concomitant]
     Dosage: 2 MG
     Dates: start: 20170214, end: 20170215
  5. PLASMA [Concomitant]
     Active Substance: HUMAN PLASMA
     Dosage: 400 ML
     Route: 065
     Dates: start: 20170215

REACTIONS (3)
  - Oedema [Unknown]
  - Flushing [Unknown]
  - Pyrexia [Unknown]

NARRATIVE: CASE EVENT DATE: 20170215
